FAERS Safety Report 8081932-2 (Version None)
Quarter: 2012Q1

REPORT INFORMATION
  Report Type: 
  Country: None (occurrence: None)
  Receive Date: 20120130
  Receipt Date: 20110505
  Transmission Date: 20120608
  Serious: No
  Sender: FDA-Public Use
  Company Number: US-ABBOTT-11P-163-0717127-00

PATIENT
  Sex: Male
  Weight: 69.008 kg

DRUGS (3)
  1. XANAX [Concomitant]
     Indication: ANXIETY
  2. MOTRIN [Concomitant]
     Indication: OSTEOARTHRITIS
  3. LUPRON DEPOT [Suspect]
     Indication: PROSTATE CANCER
     Dates: start: 20100101

REACTIONS (4)
  - HOT FLUSH [None]
  - INSOMNIA [None]
  - FATIGUE [None]
  - ASTHENIA [None]
